FAERS Safety Report 12909389 (Version 2)
Quarter: 2016Q4

REPORT INFORMATION
  Report Type: Spontaneous
  Country: US (occurrence: US)
  Receive Date: 20161104
  Receipt Date: 20161212
  Transmission Date: 20170207
  Serious: Yes (Other)
  Sender: FDA-Public Use
  Company Number: US-ROCHE-1849917

PATIENT

DRUGS (1)
  1. AVASTIN [Suspect]
     Active Substance: BEVACIZUMAB
     Indication: LUNG NEOPLASM MALIGNANT
     Route: 065

REACTIONS (6)
  - Dyspnoea [Unknown]
  - Speech disorder [Unknown]
  - Dysphagia [Unknown]
  - Flushing [Unknown]
  - Anxiety [Unknown]
  - Product quality issue [Unknown]
